FAERS Safety Report 7757757-1 (Version None)
Quarter: 2011Q3

REPORT INFORMATION
  Report Type: 
  Country: None (occurrence: None)
  Receive Date: 20110917
  Receipt Date: 20110905
  Transmission Date: 20111222
  Serious: Yes (Hospitalization)
  Sender: FDA-Public Use
  Company Number: US-MYLANLABS-2011S1018969

PATIENT
  Age: 21 Year
  Sex: Male

DRUGS (4)
  1. GLYCOPYRROLATE [Concomitant]
     Indication: TOOTH EXTRACTION
     Dosage: 0.2MG
     Route: 042
  2. FENTANYL [Concomitant]
     Indication: TOOTH EXTRACTION
     Dosage: 75MICROG
     Route: 042
  3. KETAMINE HCL [Suspect]
     Indication: TOOTH EXTRACTION
     Dosage: 650MG
     Route: 042
  4. VERSED [Concomitant]
     Indication: TOOTH EXTRACTION
     Dosage: 3MG
     Route: 042

REACTIONS (3)
  - NAUSEA [None]
  - VOMITING [None]
  - DIZZINESS [None]
